FAERS Safety Report 14199830 (Version 2)
Quarter: 2017Q4

REPORT INFORMATION
  Report Type: Spontaneous
  Country: AU (occurrence: AU)
  Receive Date: 20171117
  Receipt Date: 20171127
  Transmission Date: 20180321
  Serious: Yes (Hospitalization)
  Sender: FDA-Public Use
  Company Number: AU-SUNOVION-2017DSP005643

PATIENT
  Age: 4 Decade
  Sex: Male

DRUGS (2)
  1. LATUDA [Suspect]
     Active Substance: LURASIDONE HYDROCHLORIDE
     Dosage: 80 MG, QD
     Route: 048
     Dates: end: 201709
  2. LATUDA [Suspect]
     Active Substance: LURASIDONE HYDROCHLORIDE
     Indication: SCHIZOPHRENIA
     Dosage: 40 MG, QD
     Route: 048
     Dates: start: 201701

REACTIONS (1)
  - Aggression [Recovered/Resolved]

NARRATIVE: CASE EVENT DATE: 201709
